FAERS Safety Report 7135208-8 (Version None)
Quarter: 2010Q4

REPORT INFORMATION
  Report Type: 
  Country: None (occurrence: None)
  Receive Date: 20101203
  Receipt Date: 20101124
  Transmission Date: 20110411
  Serious: No
  Sender: FDA-Public Use
  Company Number: US-PFIZER INC-2010159465

PATIENT
  Sex: Female

DRUGS (2)
  1. EFFEXOR XR [Suspect]
  2. ATIVAN [Suspect]
     Dosage: UNK

REACTIONS (3)
  - ANXIETY [None]
  - DRUG INEFFECTIVE [None]
  - MEMORY IMPAIRMENT [None]
